FAERS Safety Report 10066226 (Version 1)
Quarter: 2014Q2

REPORT INFORMATION
  Report Type: Spontaneous
  Country: US (occurrence: US)
  Receive Date: 20140408
  Receipt Date: 20140408
  Transmission Date: 20141212
  Serious: Yes (Hospitalization, Other)
  Sender: FDA-Public Use
  Company Number: US-ELI_LILLY_AND_COMPANY-US201403010847

PATIENT
  Sex: Male

DRUGS (12)
  1. HUMULIN 30% REGULAR, 70% NPH [Suspect]
     Indication: TYPE 2 DIABETES MELLITUS
     Dosage: 75 U, EACH MORNING
     Route: 065
     Dates: start: 2008
  2. HUMULIN 30% REGULAR, 70% NPH [Suspect]
     Dosage: 25 U, EACH EVENING
     Route: 065
     Dates: start: 2008
  3. AMARYL [Concomitant]
     Dosage: 4 MG, BID
  4. METFORMIN [Concomitant]
     Dosage: 1000 MG, BID
  5. ENALAPRIL [Concomitant]
     Dosage: 20 MG, BID
  6. ATENOLOL [Concomitant]
     Dosage: 25 MG, BID
  7. COZAAR [Concomitant]
     Dosage: 50 MG, UNKNOWN
  8. ASPIRIN [Concomitant]
     Dosage: 325 MG, UNKNOWN
  9. BUMEX [Concomitant]
     Dosage: 1 MG, UNKNOWN
  10. MYLANTA                            /00416501/ [Concomitant]
     Dosage: UNK, UNKNOWN
  11. TUMS                               /00193601/ [Concomitant]
     Dosage: UNK, UNKNOWN
  12. ZANTAC [Concomitant]
     Dosage: UNK, UNKNOWN

REACTIONS (4)
  - Myocardial infarction [Unknown]
  - Myocardial infarction [Unknown]
  - Myocardial infarction [Unknown]
  - Diabetes mellitus [Not Recovered/Not Resolved]
